FAERS Safety Report 9061659 (Version 3)
Quarter: 2013Q3

REPORT INFORMATION
  Report Type: Spontaneous
  Country: US (occurrence: None)
  Receive Date: 20120907
  Receipt Date: 20130815
  Transmission Date: 20140515
  Serious: Yes (Other)
  Sender: FDA-Public Use
  Company Number: ADR-2012-01587

PATIENT
  Sex: Female

DRUGS (2)
  1. LIORESAL [Suspect]
     Indication: MUSCLE SPASTICITY
     Route: 037
  2. LIORESAL [Suspect]
     Route: 037

REACTIONS (7)
  - Urinary incontinence [None]
  - Pruritus [None]
  - Burning sensation [None]
  - Hot flush [None]
  - Feeling abnormal [None]
  - Scratch [None]
  - Skin haemorrhage [None]
